FAERS Safety Report 23909952 (Version 1)
Quarter: 2024Q2

REPORT INFORMATION
  Report Type: Spontaneous
  Country: CN (occurrence: CN)
  Receive Date: 20240528
  Receipt Date: 20240528
  Transmission Date: 20240716
  Serious: Yes (Other)
  Sender: FDA-Public Use
  Company Number: CN-SANDOZ-SDZ2024CN050921

PATIENT
  Age: 65 Year
  Sex: Male

DRUGS (2)
  1. VORICONAZOLE [Suspect]
     Active Substance: VORICONAZOLE
     Indication: Antifungal treatment
     Dosage: 200 MG, BID, TOTAL OF 8 WEEKS
     Route: 065
  2. METHYLENE BLUE [Concomitant]
     Active Substance: METHYLENE BLUE
     Indication: Product used for unknown indication
     Dosage: UNK
     Route: 065

REACTIONS (2)
  - Aspergillus infection [Unknown]
  - Drug ineffective [Unknown]
